FAERS Safety Report 24137188 (Version 1)
Quarter: 2024Q3

REPORT INFORMATION
  Report Type: Other
  Country: FR (occurrence: FR)
  Receive Date: 20240725
  Receipt Date: 20240725
  Transmission Date: 20241017
  Serious: Yes (Hospitalization)
  Sender: APPCO PHARMA
  Company Number: FR-Appco Pharma LLC-2159598

PATIENT
  Age: 45 Year
  Sex: Male

DRUGS (1)
  1. BACLOFEN [Suspect]
     Active Substance: BACLOFEN
     Indication: Alcoholism
     Route: 065
     Dates: start: 202009

REACTIONS (1)
  - Psoriasis [Recovered/Resolved]
